FAERS Safety Report 7466094-4 (Version None)
Quarter: 2011Q2

REPORT INFORMATION
  Report Type: 
  Country: None (occurrence: None)
  Receive Date: 20110509
  Receipt Date: 20100629
  Transmission Date: 20111010
  Serious: No
  Sender: FDA-Public Use
  Company Number: US-ALEXION-A201000751

PATIENT
  Sex: Female

DRUGS (20)
  1. VITAMIN B6 [Concomitant]
     Dosage: UNK
  2. IRON [Concomitant]
     Dosage: UNK
     Route: 048
  3. HYDROCHLOROTHIAZIDE [Concomitant]
     Dosage: 25 MG, QD
     Route: 048
  4. GLUCOSAMINE /CHOND                 /03040701/ [Concomitant]
     Dosage: UNK
     Route: 048
  5. SOLIRIS [Suspect]
     Dosage: 900 MG, Q2W
     Route: 042
     Dates: start: 20100427
  6. LYSINE [Concomitant]
     Dosage: 500 MG, QID
     Route: 048
  7. SOLIRIS [Suspect]
     Indication: PAROXYSMAL NOCTURNAL HAEMOGLOBINURIA
     Dosage: 600 MG, QW
     Route: 042
     Dates: start: 20100330
  8. TYLENOL W/ CODEINE NO. 3 [Concomitant]
     Dosage: PRN
     Route: 048
  9. WELLBUTRIN [Concomitant]
     Dosage: 150 MG, BID
     Route: 048
  10. EVENING PRIMROSE OIL               /01332402/ [Concomitant]
     Dosage: UNK
  11. COUMADIN [Concomitant]
     Indication: PORTAL VEIN THROMBOSIS
     Dosage: UNK
     Route: 048
  12. FOLIC ACID W/VITAMIN B12 [Concomitant]
     Dosage: UNK
  13. POTASSIUM CHLORIDE [Concomitant]
     Dosage: 20 MEQ, QD
     Route: 048
  14. CYMBALTA [Concomitant]
     Dosage: 60 MG, QD
     Route: 048
  15. MONODOX                            /00055705/ [Concomitant]
     Dosage: 100 MG, BID
     Route: 048
  16. XANAX [Concomitant]
     Dosage: 1 MG, BID
     Route: 048
  17. EMLA [Concomitant]
     Dosage: UNK
  18. VALTREX [Concomitant]
     Dosage: 1000 MG, PRN
     Route: 048
  19. VITAMIN C                          /00008001/ [Concomitant]
     Dosage: UNK
     Route: 048
  20. CALTRATE PLUS                      /01438001/ [Concomitant]
     Dosage: UNK
     Route: 048

REACTIONS (5)
  - FATIGUE [None]
  - DISTURBANCE IN ATTENTION [None]
  - TREMOR [None]
  - PLATELET COUNT DECREASED [None]
  - BLOOD BILIRUBIN INCREASED [None]
